FAERS Safety Report 13905408 (Version 1)
Quarter: 2017Q3

REPORT INFORMATION
  Report Type: Spontaneous
  Country: US (occurrence: US)
  Receive Date: 20170825
  Receipt Date: 20170825
  Transmission Date: 20171127
  Serious: No
  Sender: FDA-Public Use
  Company Number: US-TEVA-752778USA

PATIENT
  Age: 67 Year
  Sex: Female

DRUGS (3)
  1. ALENDRONATE SODIUM. [Suspect]
     Active Substance: ALENDRONATE SODIUM
     Route: 065
     Dates: start: 20160911, end: 20161030
  2. ANASTROZOLE. [Concomitant]
     Active Substance: ANASTROZOLE
  3. CALTRATE [Concomitant]
     Active Substance: CALCIUM CARBONATE

REACTIONS (4)
  - Temporomandibular joint syndrome [Not Recovered/Not Resolved]
  - Pain in jaw [Not Recovered/Not Resolved]
  - Adverse event [Not Recovered/Not Resolved]
  - Malpositioned teeth [Not Recovered/Not Resolved]
